FAERS Safety Report 18244179 (Version 3)
Quarter: 2021Q3

REPORT INFORMATION
  Report Type: Report from Study
  Country: CA (occurrence: CA)
  Receive Date: 20200908
  Receipt Date: 20210826
  Transmission Date: 20211014
  Serious: Yes (Other)
  Sender: FDA-Public Use
  Company Number: CA-JNJFOC-20200846351

PATIENT
  Age: 6 Decade
  Sex: Male
  Weight: 76.27 kg

DRUGS (3)
  1. METHOTREXATE. [Concomitant]
     Active Substance: METHOTREXATE
     Indication: PRODUCT USED FOR UNKNOWN INDICATION
     Route: 065
  2. STELARA [Suspect]
     Active Substance: USTEKINUMAB
     Indication: PSORIATIC ARTHROPATHY
     Dosage: RECEIVED INFUSION 23?AUG?2018
     Route: 058
     Dates: start: 20130527, end: 20210818
  3. STELARA [Suspect]
     Active Substance: USTEKINUMAB

REACTIONS (2)
  - Haemochromatosis [Not Recovered/Not Resolved]
  - Drug level increased [Unknown]
